FAERS Safety Report 7085856-9 (Version None)
Quarter: 2010Q4

REPORT INFORMATION
  Report Type: 
  Country: None (occurrence: None)
  Receive Date: 20101007
  Receipt Date: 20100628
  Transmission Date: 20110411
  Serious: No
  Sender: FDA-Public Use
  Company Number: 2010IP000076

PATIENT
  Sex: Female

DRUGS (1)
  1. BEPREVE [Suspect]
     Indication: PRODUCT USED FOR UNKNOWN INDICATION

REACTIONS (2)
  - LETHARGY [None]
  - SEDATION [None]
